FAERS Safety Report 4772146-X (Version None)
Quarter: 2005Q3

REPORT INFORMATION
  Report Type: 
  Country: None (occurrence: None)
  Receive Date: 20050919
  Receipt Date: 20050907
  Transmission Date: 20060218
  Serious: Yes (Death)
  Sender: FDA-Public Use
  Company Number: US-JNJFOC-20050902408

PATIENT
  Age: 34 Year
  Sex: Female

DRUGS (3)
  1. FENTANYL [Suspect]
     Indication: INTENTIONAL MISUSE
  2. SERTRALINE HCL [Suspect]
     Indication: INTENTIONAL MISUSE
  3. ACETAMINOPHEN [Suspect]
     Indication: INTENTIONAL MISUSE

REACTIONS (2)
  - CARDIAC ARREST [None]
  - COMPLETED SUICIDE [None]
